FAERS Safety Report 9307939 (Version 2)
Quarter: 2013Q3

REPORT INFORMATION
  Report Type: Report from Study
  Country: US (occurrence: US)
  Receive Date: 20130524
  Receipt Date: 20130813
  Transmission Date: 20140515
  Serious: Yes (Other)
  Sender: FDA-Public Use
  Company Number: US-ELI_LILLY_AND_COMPANY-US201301001734

PATIENT
  Age: 70 Year
  Sex: Female

DRUGS (2)
  1. TERIPARATIDE [Suspect]
     Indication: OSTEOPOROSIS
     Dosage: 1 DF, QD
     Dates: start: 20120801
  2. TERIPARATIDE [Suspect]
     Dosage: 1 DF, QD

REACTIONS (4)
  - Eye haemorrhage [Unknown]
  - Back injury [Unknown]
  - Visual impairment [Unknown]
  - Cataract [Unknown]
